FAERS Safety Report 22324423 (Version 7)
Quarter: 2023Q4

REPORT INFORMATION
  Report Type: Spontaneous
  Country: IT (occurrence: IT)
  Receive Date: 20230516
  Receipt Date: 20231129
  Transmission Date: 20240109
  Serious: Yes (Other)
  Sender: FDA-Public Use
  Company Number: IT-AMGEN-ITASP2023077221

PATIENT
  Age: 13 Year
  Sex: Female

DRUGS (8)
  1. ADALIMUMAB [Suspect]
     Active Substance: ADALIMUMAB\ISOPROPYL ALCOHOL
     Indication: Chronic recurrent multifocal osteomyelitis
     Dosage: 40 MILLIGRAM,Q2W,(EVERY 2 WEEKS)
     Route: 058
  2. CANAKINUMAB [Suspect]
     Active Substance: CANAKINUMAB
     Indication: Chronic recurrent multifocal osteomyelitis
     Dosage: 4 MILLIGRAM/KILOGRAM,EVERY 4 WEEKS
     Route: 058
  3. CANAKINUMAB [Suspect]
     Active Substance: CANAKINUMAB
     Indication: Pyoderma gangrenosum
     Dosage: 4 MILLIGRAM/KILOGRAM,EVERY 4 WEEKS
     Route: 058
  4. CANAKINUMAB [Suspect]
     Active Substance: CANAKINUMAB
     Dosage: 4 MILLIGRAM/KILOGRAM,EVERY 8 WEEKS
     Route: 058
  5. METHOTREXATE [Concomitant]
     Active Substance: METHOTREXATE
     Indication: Chronic recurrent multifocal osteomyelitis
     Dosage: 15 MILLIGRAM/SQ. METER, QW
     Route: 058
  6. CLOBETASOL [Concomitant]
     Active Substance: CLOBETASOL
     Indication: Chronic recurrent multifocal osteomyelitis
     Dosage: UNK, BID
     Route: 061
  7. PREDNISONE [Concomitant]
     Active Substance: PREDNISONE
     Indication: Chronic recurrent multifocal osteomyelitis
     Dosage: 15 MILLIGRAM, QD
     Route: 065
  8. PREDNISONE [Concomitant]
     Active Substance: PREDNISONE
     Indication: Pyoderma gangrenosum

REACTIONS (5)
  - Pyoderma gangrenosum [Recovered/Resolved]
  - Paradoxical drug reaction [Recovered/Resolved]
  - Condition aggravated [Recovered/Resolved]
  - Chronic recurrent multifocal osteomyelitis [Recovered/Resolved]
  - Off label use [Unknown]
